FAERS Safety Report 12919514 (Version 1)
Quarter: 2016Q4

REPORT INFORMATION
  Report Type: Spontaneous
  Country: JP (occurrence: JP)
  Receive Date: 20161107
  Receipt Date: 20161107
  Transmission Date: 20170207
  Serious: Yes (Other)
  Sender: FDA-Public Use
  Company Number: JP-GLAXOSMITHKLINE-JP2016JPN077277

PATIENT
  Age: 86 Year
  Sex: Female

DRUGS (9)
  1. WHITE PETROLATUM [Concomitant]
     Active Substance: PETROLATUM
     Dosage: UNK
  2. GLUCONSAN K [Concomitant]
     Dosage: 1 G, TID
  3. GLUCONSAN K [Concomitant]
     Dosage: 1.5 G, TID
  4. E KEPPRA TABLETS [Concomitant]
     Dosage: 250 MG, BID
  5. HIRUDOID LOTION [Concomitant]
     Dosage: UNK
  6. FLORINEF ACETATE [Concomitant]
     Active Substance: FLUDROCORTISONE ACETATE
     Dosage: 0.025 MG, BID
  7. NEW LECICARBON [Concomitant]
     Active Substance: SODIUM BICARBONATE\SODIUM PHOSPHATE, MONOBASIC
     Dosage: 1 DF, PRN
  8. LAMICTAL [Suspect]
     Active Substance: LAMOTRIGINE
     Indication: EPILEPSY
     Dosage: 12.5 MG, QD
     Route: 048
     Dates: start: 20160421
  9. LULICON [Concomitant]
     Active Substance: LULICONAZOLE
     Dosage: UNK, QD

REACTIONS (2)
  - Hyponatraemia [Unknown]
  - Hyponatraemia [Unknown]

NARRATIVE: CASE EVENT DATE: 20160528
